FAERS Safety Report 24439732 (Version 1)
Quarter: 2024Q4

REPORT INFORMATION
  Report Type: Spontaneous
  Country: FR (occurrence: FR)
  Receive Date: 20241015
  Receipt Date: 20241015
  Transmission Date: 20250115
  Serious: Yes (Life-Threatening)
  Sender: B BRAUN
  Company Number: FR-B.Braun Medical Inc.-2163124

PATIENT
  Age: 36 Year
  Sex: Female

DRUGS (5)
  1. LIDOCAINE HYDROCHLORIDE [Suspect]
     Active Substance: LIDOCAINE HYDROCHLORIDE
     Indication: Anaesthesia
  2. SUFENTANIL [Suspect]
     Active Substance: SUFENTANIL
  3. FERROUS SULFATE [Concomitant]
     Active Substance: FERROUS SULFATE
  4. CHLORHEXIDINE [Suspect]
     Active Substance: CHLORHEXIDINE
  5. ROPIVACAINE. [Suspect]
     Active Substance: ROPIVACAINE HYDROCHLORIDE

REACTIONS (2)
  - Obstructive airways disorder [Recovered/Resolved]
  - Maternal exposure during delivery [Recovered/Resolved]
